FAERS Safety Report 17430021 (Version 1)
Quarter: 2020Q1

REPORT INFORMATION
  Report Type: Spontaneous
  Country: US (occurrence: US)
  Receive Date: 20200218
  Receipt Date: 20200218
  Transmission Date: 20200409
  Serious: No
  Sender: FDA-Public Use
  Company Number: US-PFIZER INC-2020069947

PATIENT
  Age: 92 Year
  Sex: Female

DRUGS (2)
  1. ESTRING [Suspect]
     Active Substance: ESTRADIOL
     Indication: PROLAPSE
  2. ESTRING [Suspect]
     Active Substance: ESTRADIOL
     Indication: VAGINAL DISORDER
     Dosage: UNK

REACTIONS (4)
  - Product use in unapproved indication [Unknown]
  - Confusional state [Unknown]
  - Off label use [Unknown]
  - Hypoacusis [Unknown]
